FAERS Safety Report 15863485 (Version 2)
Quarter: 2019Q1

REPORT INFORMATION
  Report Type: Report from Study
  Country: None (occurrence: BE)
  Receive Date: 20190124
  Receipt Date: 20190130
  Transmission Date: 20190417
  Serious: Yes (Hospitalization)
  Sender: FDA-Public Use
  Company Number: BE-ABBVIE-19S-013-2633689-00

PATIENT
  Sex: Male

DRUGS (13)
  1. DUODOPA [Suspect]
     Active Substance: CARBIDOPA\LEVODOPA
     Dosage: MD=5ML CD=3.4ML/HR DURING 16HRS  ED=2ML
     Route: 050
     Dates: start: 20181002, end: 20181005
  2. LASIX [Concomitant]
     Active Substance: FUROSEMIDE
     Indication: PRODUCT USED FOR UNKNOWN INDICATION
  3. PROLOPA 125 [Concomitant]
     Indication: PARKINSON^S DISEASE
     Dosage: FORM STRENGTH: 100MG/25MG
     Route: 048
  4. PROLOPA 125 [Concomitant]
     Dosage: FORM STRENGTH: 100MG/25MG; RESCUE MEDICATION
  5. PROLOPA 125 HBS [Concomitant]
     Indication: PARKINSON^S DISEASE
     Dosage: FORM STRENGTH: 100MG/25MG
     Route: 048
  6. TAMSULOSINE EG [Concomitant]
     Active Substance: TAMSULOSIN HYDROCHLORIDE
     Indication: PRODUCT USED FOR UNKNOWN INDICATION
  7. PROLOPA 125 HBS [Concomitant]
     Dosage: FORM STRENGTH: 100MG/25MG; RESCUE MEDICATION
  8. DUODOPA [Suspect]
     Active Substance: CARBIDOPA\LEVODOPA
     Indication: PARKINSON^S DISEASE
     Dosage: UNKNOWN DOSAGES
     Route: 050
     Dates: start: 20181001, end: 20181002
  9. DUODOPA [Suspect]
     Active Substance: CARBIDOPA\LEVODOPA
     Dosage: MD=6ML CD=3.4ML/HR DURING 16HRS ED=2ML
     Route: 050
     Dates: start: 20190124
  10. BEFACT FORTE [Concomitant]
     Indication: PRODUCT USED FOR UNKNOWN INDICATION
  11. PANTOMED [Concomitant]
     Indication: PRODUCT USED FOR UNKNOWN INDICATION
  12. OXYCONTIN RETARD [Concomitant]
     Indication: PRODUCT USED FOR UNKNOWN INDICATION
  13. DUODOPA [Suspect]
     Active Substance: CARBIDOPA\LEVODOPA
     Dosage: MD=5ML CD=3.4ML/HR DURING 16HRS ED=2ML
     Route: 050
     Dates: start: 20190121, end: 20190124

REACTIONS (2)
  - Diverticulum intestinal [Unknown]
  - Procedural pain [Unknown]
